FAERS Safety Report 21265866 (Version 1)
Quarter: 2022Q3

REPORT INFORMATION
  Report Type: Spontaneous
  Country: DK (occurrence: DK)
  Receive Date: 20220829
  Receipt Date: 20220829
  Transmission Date: 20221027
  Serious: Yes (Other)
  Sender: FDA-Public Use
  Company Number: None

PATIENT
  Age: 61 Year
  Sex: Male

DRUGS (1)
  1. TOBRADEX [Suspect]
     Active Substance: DEXAMETHASONE\TOBRAMYCIN
     Indication: Retinal operation
     Dosage: DOSAGE: DRIP 4 TIMES A DAY FOR 2 WEEKS. STARTED AGAIN ON 19OCT2019: 4 TIMES/DAYSTRENGTH: 1+3 MG/ML
     Route: 050
     Dates: start: 20191002, end: 20191023

REACTIONS (4)
  - Ocular hypertension [Recovered/Resolved]
  - Papilloedema [Unknown]
  - Ocular discomfort [Recovered/Resolved]
  - Visual impairment [Not Recovered/Not Resolved]

NARRATIVE: CASE EVENT DATE: 20190101
